FAERS Safety Report 13752029 (Version 2)
Quarter: 2017Q3

REPORT INFORMATION
  Report Type: Spontaneous
  Country: US (occurrence: US)
  Receive Date: 20170713
  Receipt Date: 20170717
  Transmission Date: 20171127
  Serious: No
  Sender: FDA-Public Use
  Company Number: US-PFIZER INC-2017305927

PATIENT
  Age: 63 Year
  Sex: Male
  Weight: 117.9 kg

DRUGS (2)
  1. VIAGRA [Suspect]
     Active Substance: SILDENAFIL CITRATE
     Indication: SEXUAL DYSFUNCTION
     Dosage: 300 MG, UNK (1/2 PILL; 30 MIN LATER, 1/2 PILL; AN HOUR LATER, 1 PILL; AND 1 PILL AFTER 1 HOUR)
     Dates: start: 20170707, end: 20170707
  2. XARELTO [Concomitant]
     Active Substance: RIVAROXABAN
     Indication: THROMBOSIS
     Dosage: 1 DF, DAILY
     Dates: start: 2013

REACTIONS (2)
  - Drug ineffective [Unknown]
  - Product use issue [Unknown]

NARRATIVE: CASE EVENT DATE: 20170707
